FAERS Safety Report 10487599 (Version 12)
Quarter: 2015Q3

REPORT INFORMATION
  Report Type: Report from Study
  Country: US (occurrence: US)
  Receive Date: 20141001
  Receipt Date: 20150928
  Transmission Date: 20151125
  Serious: Yes (Other)
  Sender: FDA-Public Use
  Company Number: US-SA-2014SA127495

PATIENT
  Age: 49 Year
  Sex: Female
  Weight: 89.8 kg

DRUGS (18)
  1. AUBAGIO [Suspect]
     Active Substance: TERIFLUNOMIDE
     Indication: MULTIPLE SCLEROSIS
     Route: 048
  2. AMPYRA [Suspect]
     Active Substance: DALFAMPRIDINE
     Indication: MULTIPLE SCLEROSIS
     Dosage: STRENGTH: 10MG
     Route: 048
     Dates: start: 20150217
  3. KLOR-CON [Concomitant]
     Active Substance: POTASSIUM CHLORIDE
  4. AUBAGIO [Suspect]
     Active Substance: TERIFLUNOMIDE
     Indication: MULTIPLE SCLEROSIS
     Route: 048
     Dates: start: 20140813
  5. METFORMIN [Suspect]
     Active Substance: METFORMIN HYDROCHLORIDE
     Indication: DIABETES MELLITUS
     Route: 065
  6. AUBAGIO [Suspect]
     Active Substance: TERIFLUNOMIDE
     Indication: MULTIPLE SCLEROSIS
     Route: 048
  7. AUBAGIO [Suspect]
     Active Substance: TERIFLUNOMIDE
     Indication: MULTIPLE SCLEROSIS
     Route: 048
  8. AMARYL [Concomitant]
     Active Substance: GLIMEPIRIDE
  9. POTASSIUM [Concomitant]
     Active Substance: POTASSIUM
  10. AMPYRA [Suspect]
     Active Substance: DALFAMPRIDINE
     Indication: MULTIPLE SCLEROSIS
     Dosage: STRENGTH: 10MG
     Route: 048
     Dates: start: 201406, end: 20141230
  11. GABAPENTIN. [Concomitant]
     Active Substance: GABAPENTIN
  12. AUBAGIO [Suspect]
     Active Substance: TERIFLUNOMIDE
     Indication: MULTIPLE SCLEROSIS
     Route: 048
     Dates: start: 20140813
  13. AUBAGIO [Suspect]
     Active Substance: TERIFLUNOMIDE
     Indication: MULTIPLE SCLEROSIS
     Dosage: STREHGTH  :14 MG
     Route: 048
  14. AMPYRA [Suspect]
     Active Substance: DALFAMPRIDINE
     Indication: GAIT DISTURBANCE
     Dosage: STRENGTH: 10MG
     Route: 048
     Dates: start: 20150217
  15. ZANAFLEX [Suspect]
     Active Substance: TIZANIDINE HYDROCHLORIDE
     Dosage: STRENGTH: 4MG
     Route: 065
  16. AMPYRA [Suspect]
     Active Substance: DALFAMPRIDINE
     Indication: GAIT DISTURBANCE
     Dosage: STRENGTH: 10MG
     Route: 048
     Dates: start: 201406, end: 20141230
  17. FERROUS SULFATE [Concomitant]
     Active Substance: FERROUS SULFATE\FERROUS SULFATE, DRIED
  18. SPIRONOLACTONE. [Concomitant]
     Active Substance: SPIRONOLACTONE

REACTIONS (16)
  - Extra dose administered [Unknown]
  - Decreased appetite [Unknown]
  - Headache [Unknown]
  - Fall [Not Recovered/Not Resolved]
  - Blood glucose decreased [Unknown]
  - Slow response to stimuli [Not Recovered/Not Resolved]
  - Insomnia [Recovering/Resolving]
  - Blood glucose increased [Unknown]
  - Dysgeusia [Recovering/Resolving]
  - Vitamin D decreased [Recovered/Resolved]
  - Sleep apnoea syndrome [Not Recovered/Not Resolved]
  - Gait disturbance [Not Recovered/Not Resolved]
  - Blood magnesium decreased [Unknown]
  - Memory impairment [Unknown]
  - Asthenia [Not Recovered/Not Resolved]
  - Impaired driving ability [Not Recovered/Not Resolved]

NARRATIVE: CASE EVENT DATE: 2014
